FAERS Safety Report 7218752-4 (Version None)
Quarter: 2011Q1

REPORT INFORMATION
  Report Type: 
  Country: None (occurrence: None)
  Receive Date: 20110110
  Receipt Date: 20100315
  Transmission Date: 20110831
  Serious: No
  Sender: FDA-Public Use
  Company Number: US-ABBOTT-10P-163-0632624-00

PATIENT
  Sex: Male
  Weight: 102.15 kg

DRUGS (1)
  1. VICODIN [Suspect]
     Indication: SPONDYLITIS
     Dosage: 5/500MG
     Route: 048
     Dates: start: 19740101

REACTIONS (2)
  - PRURITUS [None]
  - DRUG INEFFECTIVE [None]
